FAERS Safety Report 4754723-5 (Version None)
Quarter: 2005Q3

REPORT INFORMATION
  Report Type: 
  Country: None (occurrence: None)
  Receive Date: 20050829
  Receipt Date: 20050808
  Transmission Date: 20060218
  Serious: Yes (Death, Life-Threatening)
  Sender: FDA-Public Use
  Company Number: 200512294JP

PATIENT
  Age: 76 Year
  Sex: Male
  Weight: 48 kg

DRUGS (6)
  1. TAXOTERE [Suspect]
     Indication: NEOPLASM MALIGNANT
     Route: 013
     Dates: start: 20050721, end: 20050721
  2. ATROPIN SULFATE [Concomitant]
     Route: 042
     Dates: start: 20050721, end: 20050721
  3. ATARAX [Concomitant]
     Route: 042
     Dates: start: 20050721, end: 20050721
  4. KYTRIL [Concomitant]
     Route: 042
     Dates: start: 20050721, end: 20050721
  5. ZANTAC [Concomitant]
     Route: 042
     Dates: start: 20050721, end: 20050721
  6. HYDROCORTONE [Concomitant]
     Route: 013
     Dates: start: 20050721, end: 20050721

REACTIONS (9)
  - BONE MARROW DEPRESSION [None]
  - DEPRESSED LEVEL OF CONSCIOUSNESS [None]
  - DISSEMINATED INTRAVASCULAR COAGULATION [None]
  - HAEMODIALYSIS [None]
  - NEUTROPENIA [None]
  - RENAL FAILURE ACUTE [None]
  - RESPIRATORY DISORDER [None]
  - SEPSIS [None]
  - THROMBOCYTOPENIA [None]
